FAERS Safety Report 9508500 (Version 2)
Quarter: 2013Q3

REPORT INFORMATION
  Report Type: Spontaneous
  Country: US (occurrence: US)
  Receive Date: 20130909
  Receipt Date: 20130913
  Transmission Date: 20140515
  Serious: No
  Sender: FDA-Public Use
  Company Number: US-PFIZER INC-2013258447

PATIENT
  Age: 70 Year
  Sex: Male
  Weight: 70.3 kg

DRUGS (6)
  1. CELEBREX [Suspect]
     Indication: ARTHRALGIA
     Dosage: 1 CAPSULE 2X/DAY
     Route: 048
     Dates: start: 2011
  2. CELEBREX [Suspect]
     Dosage: 1 CAPSULE 1X/DAY
     Route: 048
     Dates: end: 201308
  3. TRAMADOL HYDROCHLORIDE [Suspect]
     Indication: PAIN
     Dosage: 1X/DAY
  4. ACETAMINOPHEN [Suspect]
     Indication: PAIN
     Dosage: UNK
  5. NEXIUM [Concomitant]
     Indication: GASTROOESOPHAGEAL REFLUX DISEASE
     Dosage: 40 MG, 2X/DAY
  6. NEXIUM [Concomitant]
     Dosage: 40 MG, 1X/DAY

REACTIONS (5)
  - Abnormal behaviour [Unknown]
  - Feeling abnormal [Unknown]
  - Pain [Not Recovered/Not Resolved]
  - Gastric disorder [Unknown]
  - Drug ineffective [Unknown]
